FAERS Safety Report 5089672-9 (Version None)
Quarter: 2006Q3

REPORT INFORMATION
  Report Type: 
  Country: None (occurrence: None)
  Receive Date: 20060828
  Receipt Date: 20060816
  Transmission Date: 20061208
  Serious: Yes (Other)
  Sender: FDA-Public Use
  Company Number: US-JNJFOC-20060803770

PATIENT
  Age: 4 Decade
  Sex: Female

DRUGS (3)
  1. REMICADE [Suspect]
     Indication: GASTROINTESTINAL DISORDER
     Dosage: DOSE ^4 VIALS^
     Route: 042
  2. BENADRYL [Concomitant]
     Indication: PREMEDICATION
     Route: 048
  3. EXTRA STRENGTH TYLENOL [Concomitant]
     Indication: PREMEDICATION
     Route: 048

REACTIONS (6)
  - ANXIETY [None]
  - CHEST DISCOMFORT [None]
  - DYSPEPSIA [None]
  - HYPERTENSION [None]
  - INFUSION RELATED REACTION [None]
  - PARALYSIS [None]
